FAERS Safety Report 14329354 (Version 1)
Quarter: 2017Q4

REPORT INFORMATION
  Report Type: Spontaneous
  Country: US (occurrence: US)
  Receive Date: 20171227
  Receipt Date: 20171227
  Transmission Date: 20180321
  Serious: No
  Sender: FDA-Public Use
  Company Number: US-BAYER-2017-244574

PATIENT
  Sex: Female

DRUGS (1)
  1. ALEVE [Suspect]
     Active Substance: NAPROXEN SODIUM
     Indication: MUSCULOSKELETAL PAIN
     Dosage: UNK

REACTIONS (5)
  - Migraine [None]
  - Abdominal pain upper [None]
  - Gastrointestinal disorder [None]
  - Fatigue [None]
  - Mobility decreased [None]
